APPROVED DRUG PRODUCT: VERAPAMIL HYDROCHLORIDE
Active Ingredient: VERAPAMIL HYDROCHLORIDE
Strength: 180MG
Dosage Form/Route: TABLET, EXTENDED RELEASE;ORAL
Application: A074587 | Product #003
Applicant: RISING PHARMA HOLDING INC
Approved: Sep 9, 1997 | RLD: No | RS: No | Type: DISCN